FAERS Safety Report 9495884 (Version 2)
Quarter: 2013Q4

REPORT INFORMATION
  Report Type: Spontaneous
  Country: FR (occurrence: FR)
  Receive Date: 20130903
  Receipt Date: 20131024
  Transmission Date: 20140711
  Serious: Yes (Hospitalization, Other)
  Sender: FDA-Public Use
  Company Number: FR-ASTRAZENECA-2013SE66269

PATIENT
  Age: 77 Year
  Sex: Female

DRUGS (11)
  1. CRESTOR [Suspect]
     Indication: DYSLIPIDAEMIA
     Route: 048
     Dates: start: 2010, end: 201307
  2. TEGRETOL [Suspect]
     Indication: BIPOLAR DISORDER
     Route: 048
     Dates: end: 201307
  3. NOVATREX [Suspect]
     Indication: PSORIASIS
     Route: 048
     Dates: start: 2010, end: 201307
  4. NOVATREX [Suspect]
     Indication: PSORIASIS
     Route: 048
     Dates: start: 20130914
  5. AUGMENTIN [Suspect]
     Indication: LUNG DISORDER
     Route: 048
     Dates: start: 201305
  6. XARELTO [Concomitant]
     Indication: ATRIAL FIBRILLATION
     Route: 048
     Dates: start: 201306, end: 201307
  7. KARDEGIC [Concomitant]
  8. IMOVANE [Concomitant]
  9. CARDENSIEL [Concomitant]
  10. NICOPATCH [Concomitant]
  11. SPECIAFOLDINE [Concomitant]

REACTIONS (8)
  - Cholestasis [Recovered/Resolved]
  - Confusional state [Unknown]
  - Atrial fibrillation [Unknown]
  - Cardiac failure [Unknown]
  - Pneumonia [Unknown]
  - Hepatitis [Recovered/Resolved]
  - Psoriasis [Unknown]
  - Gamma-glutamyltransferase increased [Unknown]
